FAERS Safety Report 6684022-6 (Version None)
Quarter: 2010Q2

REPORT INFORMATION
  Report Type: 
  Country: None (occurrence: None)
  Receive Date: 20100416
  Receipt Date: 20100407
  Transmission Date: 20101027
  Serious: Yes (Death)
  Sender: FDA-Public Use
  Company Number: US-PFIZER INC-2010044601

PATIENT
  Age: 66 Year
  Sex: Female

DRUGS (3)
  1. ADRIAMYCIN PFS [Suspect]
     Indication: BREAST CANCER
     Dosage: EVERY CYCLE.
     Route: 042
     Dates: start: 20100226, end: 20100226
  2. CYCLOPHOSPHAMIDE [Suspect]
     Indication: BREAST CANCER
     Dosage: EVERY CYCLE
     Route: 042
     Dates: start: 20100226, end: 20100226
  3. TAXOTERE [Suspect]
     Indication: BREAST CANCER
     Dosage: EVERY CYCLE.
     Route: 041
     Dates: start: 20100226, end: 20100226

REACTIONS (1)
  - DEATH [None]
